FAERS Safety Report 13882449 (Version 1)
Quarter: 2017Q3

REPORT INFORMATION
  Report Type: Spontaneous
  Country: AT (occurrence: AT)
  Receive Date: 20170818
  Receipt Date: 20170818
  Transmission Date: 20171127
  Serious: Yes (Hospitalization, Other)
  Sender: FDA-Public Use
  Company Number: AT-JNJFOC-20170803451

PATIENT
  Age: 87 Year
  Sex: Male

DRUGS (4)
  1. FENTANYL. [Suspect]
     Active Substance: FENTANYL
     Indication: ARTHRALGIA
     Route: 062
  2. PRAMIPEXOLE. [Suspect]
     Active Substance: PRAMIPEXOLE
     Indication: RESTLESS LEGS SYNDROME
     Dosage: FOR MORE THAN 12 MONTHS
     Route: 065
  3. NALOXONE W/TILIDINE [Interacting]
     Active Substance: NALOXONE HYDROCHLORIDE\TILIDINE HYDROCHLORIDE
     Indication: ARTHRALGIA
     Route: 048
  4. NALOXONE W/TILIDINE [Interacting]
     Active Substance: NALOXONE HYDROCHLORIDE\TILIDINE HYDROCHLORIDE
     Indication: ARTHRALGIA
     Route: 048

REACTIONS (6)
  - Hyperaesthesia [Unknown]
  - Dyskinesia [Recovered/Resolved]
  - Restless legs syndrome [Recovered/Resolved]
  - Overdose [Unknown]
  - Drug interaction [Unknown]
  - Withdrawal syndrome [Unknown]
